FAERS Safety Report 10199511 (Version 1)
Quarter: 2014Q2

REPORT INFORMATION
  Report Type: Report from Study
  Country: US (occurrence: US)
  Receive Date: 20140527
  Receipt Date: 20140527
  Transmission Date: 20141212
  Serious: Yes (Hospitalization)
  Sender: FDA-Public Use
  Company Number: US-SA-2014SA065105

PATIENT
  Age: 23 Year
  Sex: Male
  Weight: 83.6 kg

DRUGS (10)
  1. CLOFARABINE [Suspect]
     Indication: LYMPHOCYTIC LEUKAEMIA
     Route: 065
     Dates: start: 20140226
  2. CLOFARABINE [Suspect]
     Indication: LYMPHOCYTIC LEUKAEMIA
     Route: 065
     Dates: start: 20140401
  3. CLOFARABINE [Suspect]
     Indication: LYMPHOCYTIC LEUKAEMIA
     Route: 065
     Dates: start: 20140429, end: 20140503
  4. ETOPOSIDE [Suspect]
     Indication: LYMPHOCYTIC LEUKAEMIA
     Route: 065
     Dates: start: 20140226
  5. ETOPOSIDE [Suspect]
     Indication: LYMPHOCYTIC LEUKAEMIA
     Route: 065
     Dates: start: 20140401
  6. ETOPOSIDE [Suspect]
     Indication: LYMPHOCYTIC LEUKAEMIA
     Route: 065
     Dates: start: 20140429, end: 20140503
  7. CYCLOPHOSPHAMIDE [Suspect]
     Indication: LYMPHOCYTIC LEUKAEMIA
     Route: 065
     Dates: start: 20140226
  8. CYCLOPHOSPHAMIDE [Suspect]
     Indication: LYMPHOCYTIC LEUKAEMIA
     Route: 065
     Dates: start: 20140401
  9. CYCLOPHOSPHAMIDE [Suspect]
     Indication: LYMPHOCYTIC LEUKAEMIA
     Route: 065
     Dates: start: 20140429, end: 20140503
  10. NEULASTA [Concomitant]
     Dates: start: 20140505

REACTIONS (1)
  - Colitis [Unknown]
